FAERS Safety Report 8469562-1 (Version None)
Quarter: 2012Q2

REPORT INFORMATION
  Report Type: 
  Country: None (occurrence: None)
  Receive Date: 20120626
  Receipt Date: 20110526
  Transmission Date: 20120825
  Serious: No
  Sender: FDA-Public Use
  Company Number: US-BAUSCH-2011BL003536

PATIENT
  Age: 19 Month
  Sex: Female

DRUGS (1)
  1. OFLOXACIN [Suspect]
     Route: 001
     Dates: start: 20110303, end: 20110303

REACTIONS (3)
  - INCORRECT ROUTE OF DRUG ADMINISTRATION [None]
  - DRUG DISPENSING ERROR [None]
  - EAR DISCOMFORT [None]
